FAERS Safety Report 5770067-7 (Version None)
Quarter: 2008Q2

REPORT INFORMATION
  Report Type: 
  Country: None (occurrence: None)
  Receive Date: 20080613
  Receipt Date: 20080421
  Transmission Date: 20081010
  Serious: No
  Sender: FDA-Public Use
  Company Number: US-ABBOTT-08P-163-0448318-00

PATIENT
  Sex: Female

DRUGS (3)
  1. HUMIRA [Suspect]
     Indication: CROHN'S DISEASE
     Dosage: 160MG X 1
     Route: 058
     Dates: start: 20080417, end: 20080417
  2. HUMIRA [Suspect]
     Dosage: 80MG X 1
  3. HUMIRA [Suspect]
     Route: 058

REACTIONS (2)
  - NAUSEA [None]
  - VOMITING [None]
